FAERS Safety Report 24677317 (Version 1)
Quarter: 2024Q4

REPORT INFORMATION
  Report Type: Spontaneous
  Country: US (occurrence: US)
  Receive Date: 20241129
  Receipt Date: 20241129
  Transmission Date: 20250115
  Serious: No
  Sender: AUROBINDO
  Company Number: US-AUROBINDO-AUR-APL-2024-038295

PATIENT
  Age: 88 Year
  Sex: Female
  Weight: 79.3 kg

DRUGS (1)
  1. RISEDRONATE SODIUM [Suspect]
     Active Substance: RISEDRONATE SODIUM
     Indication: Osteoporosis
     Dosage: UNK (ONCE A MONTH)
     Route: 065

REACTIONS (3)
  - Asthenia [Unknown]
  - Blood glucose increased [Unknown]
  - Feeling abnormal [Unknown]
